FAERS Safety Report 6551902-1 (Version None)
Quarter: 2010Q1

REPORT INFORMATION
  Report Type: 
  Country: None (occurrence: None)
  Receive Date: 20100126
  Receipt Date: 20100113
  Transmission Date: 20100710
  Serious: No
  Sender: FDA-Public Use
  Company Number: US-B.I. PHARMACEUTICALS,INC./RIDGEFIELD-2010-BP-00427BP

PATIENT
  Age: 69 Year
  Sex: Male

DRUGS (1)
  1. MIRAPEX [Suspect]

REACTIONS (1)
  - GAMBLING [None]
